FAERS Safety Report 17770609 (Version 2)
Quarter: 2020Q3

REPORT INFORMATION
  Report Type: Spontaneous
  Country: US (occurrence: US)
  Receive Date: 20200512
  Receipt Date: 20200826
  Transmission Date: 20201102
  Serious: No
  Sender: FDA-Public Use
  Company Number: US-FDC LIMITED-2083706

PATIENT
  Age: 83 Year
  Sex: Female
  Weight: 63.64 kg

DRUGS (1)
  1. CIPROFLOXACIN. [Suspect]
     Active Substance: CIPROFLOXACIN
     Indication: CONJUNCTIVITIS BACTERIAL
     Route: 047
     Dates: start: 20200411, end: 20200415

REACTIONS (3)
  - Eye pruritus [Unknown]
  - Incorrect dose administered [Unknown]
  - Eye irritation [Unknown]

NARRATIVE: CASE EVENT DATE: 20200411
